FAERS Safety Report 18323333 (Version 2)
Quarter: 2020Q4

REPORT INFORMATION
  Report Type: Spontaneous
  Country: BE (occurrence: BE)
  Receive Date: 20200929
  Receipt Date: 20201209
  Transmission Date: 20210113
  Serious: Yes (Hospitalization)
  Sender: FDA-Public Use
  Company Number: BE-SAMSUNG BIOEPIS-SB-2020-28635

PATIENT
  Age: 47 Year
  Sex: Male
  Weight: 86 kg

DRUGS (22)
  1. DAFALGAN [Concomitant]
     Active Substance: ACETAMINOPHEN
     Indication: PAIN
     Dosage: MAX 4
     Route: 065
  2. LIPANTHYL [Concomitant]
     Active Substance: FENOFIBRATE
     Indication: HYPERCHOLESTEROLAEMIA
     Route: 065
  3. ZESTRIL [Concomitant]
     Active Substance: LISINOPRIL
     Indication: HYPERTENSION
     Route: 065
  4. HUMIRA [Concomitant]
     Active Substance: ADALIMUMAB
     Dosage: WEEK ZERO, NORMAL DOSE
     Route: 065
  5. AMOXICLAV SANDOZ [Concomitant]
     Active Substance: AMOXICILLIN\CLAVULANATE POTASSIUM
     Indication: BACTERIAL INFECTION
     Dosage: 1 G/200 MG, ONE TO THREE TIMES PER DAY
     Route: 065
     Dates: start: 20200507, end: 20200508
  6. PENTASA [Concomitant]
     Active Substance: MESALAMINE
     Dosage: UNKNOWN
     Route: 065
  7. HUMIRA [Concomitant]
     Active Substance: ADALIMUMAB
     Route: 065
  8. HUMIRA [Concomitant]
     Active Substance: ADALIMUMAB
     Dosage: UNKNOWN
     Route: 065
     Dates: start: 201605
  9. SIMVASTATIN. [Concomitant]
     Active Substance: SIMVASTATIN
     Indication: PRODUCT USED FOR UNKNOWN INDICATION
     Route: 065
  10. LISINOPRIL. [Concomitant]
     Active Substance: LISINOPRIL
     Indication: HYPERTENSION
     Route: 065
     Dates: start: 20200507, end: 20200508
  11. IMRALDI [Suspect]
     Active Substance: ADALIMUMAB
     Indication: COLITIS ULCERATIVE
     Dosage: DOSE 40 MG/0.8 ML
     Route: 058
     Dates: start: 20191125
  12. PENTASA [Concomitant]
     Active Substance: MESALAMINE
     Indication: COLITIS ULCERATIVE
     Dosage: UNKNOWN
     Route: 048
  13. HUMIRA [Concomitant]
     Active Substance: ADALIMUMAB
     Dosage: WEEK FOUR AND SIX
     Route: 065
  14. HUMIRA [Concomitant]
     Active Substance: ADALIMUMAB
     Dosage: WEEK EIGHT, RE-RANDOMIZATION
     Route: 065
  15. PARACETAMOL FRESENIUS [Concomitant]
     Indication: PAIN
     Dosage: 4 X 1 G/100 ML, ONCE
     Route: 065
     Dates: start: 20200507, end: 20200507
  16. HUMIRA [Concomitant]
     Active Substance: ADALIMUMAB
     Indication: PRODUCT USED FOR UNKNOWN INDICATION
     Dosage: 4X 160 MILLIGRAM, HIGH DOSE
     Route: 065
     Dates: start: 201512
  17. HUMIRA [Concomitant]
     Active Substance: ADALIMUMAB
     Dosage: WEEK TWO
     Route: 065
  18. HUMIRA [Concomitant]
     Active Substance: ADALIMUMAB
     Dosage: WEEK FOUR AND SIX
     Route: 065
  19. HUMIRA [Concomitant]
     Active Substance: ADALIMUMAB
     Dosage: WITH DOSE ADJUSTMENT ACCORDING TO TROUGH LEVELS
     Route: 065
  20. HUMIRA [Concomitant]
     Active Substance: ADALIMUMAB
     Dosage: 40 MG/0.4 ML
     Route: 058
  21. STEROFUNDIN [Concomitant]
     Active Substance: CALCIUM CHLORIDE\MAGNESIUM CHLORIDE\POTASSIUM CHLORIDE\SODIUM ACETATE\SODIUM CHLORIDE
     Indication: DEHYDRATION
     Dosage: 40 ML/H
     Route: 065
     Dates: start: 20200507, end: 20200508
  22. TRADONAL [Concomitant]
     Active Substance: TRAMADOL HYDROCHLORIDE
     Indication: PAIN
     Dosage: 2 INTO 100 MILLIGRAM
     Route: 065
     Dates: start: 20200507, end: 20200508

REACTIONS (2)
  - Colitis ulcerative [Unknown]
  - Diverticulitis [Recovered/Resolved]

NARRATIVE: CASE EVENT DATE: 202004
